FAERS Safety Report 10232515 (Version 1)
Quarter: 2014Q2

REPORT INFORMATION
  Report Type: Spontaneous
  Country: US (occurrence: None)
  Receive Date: 20140506
  Receipt Date: 20140506
  Transmission Date: 20141212
  Serious: Yes (Other)
  Sender: FDA-Public Use
  Company Number: 1221285

PATIENT
  Sex: Male

DRUGS (1)
  1. AVASTATIN (BEVACIZUMAB) [Suspect]
     Indication: COLON CANCER STAGE IV
     Route: 042

REACTIONS (1)
  - Pulmonary embolism [None]
